FAERS Safety Report 8332329-9 (Version None)
Quarter: 2012Q2

REPORT INFORMATION
  Report Type: 
  Country: None (occurrence: None)
  Receive Date: 20120503
  Receipt Date: 20120425
  Transmission Date: 20120825
  Serious: Yes (Hospitalization)
  Sender: FDA-Public Use
  Company Number: US-AMGEN-USASP2012026233

PATIENT
  Age: 44 Year
  Sex: Female

DRUGS (1)
  1. ENBREL [Suspect]
     Indication: PSORIASIS
     Dosage: 50 MG, QWK
     Dates: start: 20050201

REACTIONS (11)
  - PSORIASIS [None]
  - POLYMENORRHOEA [None]
  - FOOT FRACTURE [None]
  - ABDOMINAL PAIN [None]
  - DYSMENORRHOEA [None]
  - OVARIAN MASS [None]
  - SCIATICA [None]
  - BUNION [None]
  - INTERVERTEBRAL DISC DEGENERATION [None]
  - FALL [None]
  - CARPAL TUNNEL SYNDROME [None]
